FAERS Safety Report 13513585 (Version 1)
Quarter: 2017Q2

REPORT INFORMATION
  Report Type: Spontaneous
  Country: US (occurrence: US)
  Receive Date: 20170504
  Receipt Date: 20170504
  Transmission Date: 20170830
  Serious: Yes (Death)
  Sender: FDA-Public Use
  Company Number: None

PATIENT
  Age: 68 Year
  Sex: Male

DRUGS (15)
  1. LUTEIN [Concomitant]
     Active Substance: LUTEIN
  2. TAMSULOSIN [Concomitant]
     Active Substance: TAMSULOSIN
  3. FUROSEMIDE. [Concomitant]
     Active Substance: FUROSEMIDE
  4. MELATONIN [Concomitant]
     Active Substance: MELATONIN
  5. PANTOPRAZOLE [Concomitant]
     Active Substance: PANTOPRAZOLE
  6. ANDRO ELLIPT [Concomitant]
  7. DHEA [Concomitant]
     Active Substance: PRASTERONE
  8. LOSARTAN. [Concomitant]
     Active Substance: LOSARTAN
  9. SINGULAIR [Concomitant]
     Active Substance: MONTELUKAST SODIUM
  10. LEVETIRACETA [Concomitant]
  11. ENTECAVIR 0.5MG [Suspect]
     Active Substance: ENTECAVIR
     Indication: HEPATITIS B
     Route: 048
     Dates: start: 20130916, end: 2017
  12. ALBUTEROL. [Concomitant]
     Active Substance: ALBUTEROL
  13. COQ 10 [Concomitant]
     Active Substance: UBIDECARENONE
  14. DULOXETINE. [Concomitant]
     Active Substance: DULOXETINE
  15. XOLAIR [Suspect]
     Active Substance: OMALIZUMAB
     Indication: ASTHMA
     Route: 058
     Dates: start: 20150918, end: 2017

REACTIONS (1)
  - Myocardial infarction [None]
